FAERS Safety Report 20958897 (Version 1)
Quarter: 2022Q2

REPORT INFORMATION
  Report Type: Report from Study
  Country: JP (occurrence: JP)
  Receive Date: 20220614
  Receipt Date: 20220614
  Transmission Date: 20220721
  Serious: Yes (Hospitalization)
  Sender: FDA-Public Use
  Company Number: JP-TEVA-2022-JP-2045350

PATIENT
  Age: 4 Day
  Sex: Female
  Weight: 2.508 kg

DRUGS (6)
  1. ATOMOXETINE [Suspect]
     Active Substance: ATOMOXETINE
     Indication: Drug therapy
     Dosage: THE MOTHER RECEIVED ATOMOXETINE 50 MG DAILY FOR DEPRESSIVE SYMPTOMS
     Route: 064
  2. DULOXETINE [Suspect]
     Active Substance: DULOXETINE
     Indication: Drug therapy
     Dosage: THE MOTHER RECEIVED DULOXETINE 20 MG ONCE DAILY FOR DEPRESSIVE SYMPTOMS
     Route: 064
  3. FLUNITRAZEPAM [Suspect]
     Active Substance: FLUNITRAZEPAM
     Indication: Drug therapy
     Dosage: THE MOTHER RECEIVED FLUNITRAZEPAM 0.5 MG DAILY FOR DEPRESSIVE SYMPTOMS
     Route: 064
  4. TRAZODONE [Suspect]
     Active Substance: TRAZODONE HYDROCHLORIDE
     Indication: Drug therapy
     Dosage: THE MOTHER RECEIVED TRAZODONE 12.5 MG DAILY FOR DEPRESSIVE SYMPTOMS
     Route: 064
  5. LORAZEPAM [Suspect]
     Active Substance: LORAZEPAM
     Indication: Drug therapy
     Dosage: THE MOTHER RECEIVED LORAZEPAM 1.5 MG DAILY FOR DEPRESSIVE SYMPTOMS
     Route: 064
  6. BROTIZOLAM [Suspect]
     Active Substance: BROTIZOLAM
     Indication: Drug therapy
     Dosage: THE MOTHER RECEIVED BROTIZOLAM 0.125 MG DAILY FOR DEPRESSIVE SYMPTOMS
     Route: 064

REACTIONS (2)
  - Drug withdrawal syndrome neonatal [Recovered/Resolved]
  - Foetal exposure during pregnancy [Unknown]
